FAERS Safety Report 24279030 (Version 1)
Quarter: 2024Q3

REPORT INFORMATION
  Report Type: Spontaneous
  Country: FR (occurrence: FR)
  Receive Date: 20240903
  Receipt Date: 20240903
  Transmission Date: 20241017
  Serious: Yes (Hospitalization)
  Sender: TEVA
  Company Number: None

PATIENT
  Age: 68 Year
  Sex: Male
  Weight: 59.7 kg

DRUGS (15)
  1. PEMETREXED [Suspect]
     Active Substance: PEMETREXED
     Indication: Lung adenocarcinoma
     Dosage: TIME INTERVAL: TOTAL
     Route: 042
     Dates: start: 20240402, end: 20240402
  2. PEMETREXED [Suspect]
     Active Substance: PEMETREXED
     Indication: Lung adenocarcinoma
     Dosage: TIME INTERVAL: TOTAL
     Route: 042
     Dates: start: 20240604, end: 20240604
  3. PEMETREXED [Suspect]
     Active Substance: PEMETREXED
     Indication: Lung adenocarcinoma
     Dosage: TIME INTERVAL: TOTAL
     Route: 042
     Dates: start: 20240625, end: 20240625
  4. PEMETREXED [Suspect]
     Active Substance: PEMETREXED
     Indication: Lung adenocarcinoma
     Dosage: TIME INTERVAL: TOTAL
     Route: 042
     Dates: start: 20240515, end: 20240515
  5. PEMETREXED [Suspect]
     Active Substance: PEMETREXED
     Indication: Lung adenocarcinoma
     Dosage: TIME INTERVAL: TOTAL
     Route: 042
     Dates: start: 20240423, end: 20240423
  6. EMEND [Concomitant]
     Active Substance: APREPITANT
     Indication: Product used for unknown indication
     Route: 065
  7. ONDANSETRON [Concomitant]
     Active Substance: ONDANSETRON
     Indication: Product used for unknown indication
     Route: 065
  8. ALLOPURINOL [Concomitant]
     Active Substance: ALLOPURINOL
     Indication: Product used for unknown indication
     Route: 065
  9. CARBOPLATIN [Suspect]
     Active Substance: CARBOPLATIN
     Indication: Lung adenocarcinoma
     Dosage: TIME INTERVAL: TOTAL
     Route: 042
     Dates: start: 20240402, end: 20240402
  10. CARBOPLATIN [Suspect]
     Active Substance: CARBOPLATIN
     Indication: Lung adenocarcinoma
     Dosage: TIME INTERVAL: TOTAL
     Route: 042
     Dates: start: 20240625, end: 20240625
  11. CARBOPLATIN [Suspect]
     Active Substance: CARBOPLATIN
     Indication: Lung adenocarcinoma
     Dosage: TIME INTERVAL: TOTAL
     Route: 042
     Dates: start: 20240515, end: 20240515
  12. CARBOPLATIN [Suspect]
     Active Substance: CARBOPLATIN
     Indication: Lung adenocarcinoma
     Dosage: TIME INTERVAL: TOTAL
     Route: 042
     Dates: start: 20240604, end: 20240604
  13. CARBOPLATIN [Suspect]
     Active Substance: CARBOPLATIN
     Indication: Lung adenocarcinoma
     Dosage: TIME INTERVAL: TOTAL
     Route: 042
     Dates: start: 20240423, end: 20240423
  14. LEVOTHYROXINE [Concomitant]
     Active Substance: LEVOTHYROXINE\LEVOTHYROXINE SODIUM
     Indication: Product used for unknown indication
     Route: 065
  15. KEYTRUDA [Suspect]
     Active Substance: PEMBROLIZUMAB
     Indication: Lung adenocarcinoma
     Dosage: TIME INTERVAL: CYCLICAL
     Route: 042
     Dates: start: 20240402, end: 20240625

REACTIONS (2)
  - Oesophagitis [Not Recovered/Not Resolved]
  - Intestinal pseudo-obstruction [Recovered/Resolved]

NARRATIVE: CASE EVENT DATE: 20240708
